FAERS Safety Report 6405909-5 (Version None)
Quarter: 2009Q4

REPORT INFORMATION
  Report Type: 
  Country: None (occurrence: None)
  Receive Date: 20091014
  Receipt Date: 20090930
  Transmission Date: 20100525
  Serious: Yes (Hospitalization)
  Sender: FDA-Public Use
  Company Number: 2009AC000069

PATIENT
  Age: 55 Year
  Sex: Male

DRUGS (15)
  1. DIGOXIN [Suspect]
     Dosage: .25 MG; 1X
  2. POTASSIUM CHLORIDE [Concomitant]
  3. ZINACEF [Concomitant]
  4. QUINIDINE HCL [Concomitant]
  5. MEXITIL [Concomitant]
  6. LISINOPRIL [Concomitant]
  7. LASIX [Concomitant]
  8. XANAX [Concomitant]
  9. AMIODARONE [Concomitant]
  10. ASPIRIN [Concomitant]
  11. SURFAX [Concomitant]
  12. ALDACTONE [Concomitant]
  13. PRINIVIL [Concomitant]
  14. K-DUR [Concomitant]
  15. COREG [Concomitant]

REACTIONS (28)
  - ABNORMAL FAECES [None]
  - ARRHYTHMIA [None]
  - ASTHMA [None]
  - ATELECTASIS [None]
  - BLOOD GLUCOSE INCREASED [None]
  - BUNDLE BRANCH BLOCK LEFT [None]
  - CARDIAC FAILURE [None]
  - CARDIAC FAILURE CONGESTIVE [None]
  - CARDIOMEGALY [None]
  - CARDIOMYOPATHY [None]
  - CELLULITIS [None]
  - CONDITION AGGRAVATED [None]
  - DEVICE MALFUNCTION [None]
  - DYSPNOEA [None]
  - DYSPNOEA EXERTIONAL [None]
  - ECONOMIC PROBLEM [None]
  - EJECTION FRACTION DECREASED [None]
  - MITRAL VALVE INCOMPETENCE [None]
  - MULTIPLE INJURIES [None]
  - ORTHOPNOEA [None]
  - PLEURAL EFFUSION [None]
  - SURGERY [None]
  - THROMBOPHLEBITIS [None]
  - TRICUSPID VALVE INCOMPETENCE [None]
  - UNRESPONSIVE TO STIMULI [None]
  - VENTRICULAR FIBRILLATION [None]
  - VENTRICULAR TACHYCARDIA [None]
  - WAIST CIRCUMFERENCE INCREASED [None]
